FAERS Safety Report 6094441-7 (Version None)
Quarter: 2009Q1

REPORT INFORMATION
  Report Type: 
  Country: None (occurrence: None)
  Receive Date: 20090224
  Receipt Date: 20090205
  Transmission Date: 20090719
  Serious: Yes (Hospitalization)
  Sender: FDA-Public Use
  Company Number: 20080318

PATIENT
  Age: 76 Year
  Sex: Male

DRUGS (6)
  1. VENOFER [Suspect]
     Indication: IRON DEFICIENCY ANAEMIA
     Dosage: 200 MG, 4 INFUSIONS INTRAVENOUS DRIP
     Route: 041
     Dates: start: 20081022, end: 20081025
  2. PERINDOPRIL ERBUMINE [Concomitant]
  3. CARLOC (CARVEDILOL) [Concomitant]
  4. ALLERGEX (CHLORPHENIRAMINE MALEATE) [Concomitant]
  5. SINUCON (OHENYTOLOXAMINE CITRATE, CHLORPHENIRAMINE MALEATED, PHENYLEPH [Concomitant]
  6. ASPIRIN [Concomitant]

REACTIONS (4)
  - INFUSION SITE EXTRAVASATION [None]
  - INFUSION SITE REACTION [None]
  - INFUSION SITE SWELLING [None]
  - THROMBOPHLEBITIS [None]
